FAERS Safety Report 8885191 (Version 1)
Quarter: 2012Q4

REPORT INFORMATION
  Report Type: Report from Study
  Country: CA (occurrence: CA)
  Receive Date: 20121101
  Receipt Date: 20121101
  Transmission Date: 20130627
  Serious: Yes (Hospitalization)
  Sender: FDA-Public Use
  Company Number: CA-ROCHE-1150822

PATIENT
  Age: 43 Year
  Sex: Female
  Weight: 72.6 kg

DRUGS (4)
  1. RITUXIMAB [Suspect]
     Indication: RHEUMATOID ARTHRITIS
     Route: 042
     Dates: start: 20090630
  2. PAROXETINE [Concomitant]
  3. NAPROXEN [Concomitant]
  4. METHOTREXATE [Concomitant]

REACTIONS (2)
  - Abdominal pain [Not Recovered/Not Resolved]
  - Nephrolithiasis [Not Recovered/Not Resolved]
